FAERS Safety Report 25877722 (Version 1)
Quarter: 2025Q4

REPORT INFORMATION
  Report Type: Spontaneous
  Country: RU (occurrence: RU)
  Receive Date: 20251003
  Receipt Date: 20251003
  Transmission Date: 20260118
  Serious: Yes (Death, Other)
  Sender: SANOFI AVENTIS
  Company Number: RU-SA-2025SA291920

PATIENT
  Sex: Male

DRUGS (1)
  1. BELUMOSUDIL MESYLATE [Suspect]
     Active Substance: BELUMOSUDIL MESYLATE
     Indication: Chronic graft versus host disease
     Dosage: 200 MG, QD
     Dates: start: 202506

REACTIONS (5)
  - Death [Fatal]
  - Sepsis [Unknown]
  - Multiple organ dysfunction syndrome [Unknown]
  - Organising pneumonia [Unknown]
  - Infection [Unknown]

NARRATIVE: CASE EVENT DATE: 20250101
